FAERS Safety Report 22596854 (Version 1)
Quarter: 2023Q2

REPORT INFORMATION
  Report Type: Spontaneous
  Country: CN (occurrence: CN)
  Receive Date: 20230613
  Receipt Date: 20230613
  Transmission Date: 20230721
  Serious: Yes (Disabling, Other)
  Sender: FDA-Public Use
  Company Number: CN-FreseniusKabi-FK202308447

PATIENT
  Age: 60 Year
  Sex: Female
  Weight: 53 kg

DRUGS (1)
  1. KABIVEN [Suspect]
     Active Substance: AMINO ACIDS\ANHYDROUS DEXTROSE\CALCIUM CHLORIDE\MAGNESIUM SULFATE HEPTAHYDRATE\POTASSIUM CHLORIDE\SO
     Indication: Colon cancer stage 0
     Route: 041
     Dates: start: 20230531, end: 20230601

REACTIONS (3)
  - Chills [Recovering/Resolving]
  - Nausea [Recovering/Resolving]
  - Pyrexia [Recovering/Resolving]

NARRATIVE: CASE EVENT DATE: 20230601
